FAERS Safety Report 8871931 (Version 2)
Quarter: 2012Q4

REPORT INFORMATION
  Report Type: 
  Country: FR (occurrence: FR)
  Receive Date: 20121029
  Receipt Date: 20121108
  Transmission Date: 20130627
  Serious: Yes (Other)
  Sender: FDA-Public Use
  Company Number: FR-RANBAXY-2012RR-61490

PATIENT
  Age: 78 Year
  Sex: Female

DRUGS (3)
  1. PARACETAMOL [Suspect]
     Indication: BRONCHITIS CHRONIC
     Dosage: UNK
     Route: 065
  2. BRONCHOKOD [Suspect]
     Indication: BRONCHITIS CHRONIC
     Dosage: UNK
     Route: 065
  3. HUMEX(CARBOCYSTEINE) [Suspect]
     Indication: BRONCHITIS CHRONIC
     Dosage: UNK
     Route: 065

REACTIONS (1)
  - Drug eruption [Unknown]
